FAERS Safety Report 13753984 (Version 2)
Quarter: 2017Q3

REPORT INFORMATION
  Report Type: Spontaneous
  Country: US (occurrence: US)
  Receive Date: 20170713
  Receipt Date: 20170718
  Transmission Date: 20171127
  Serious: Yes (Other)
  Sender: FDA-Public Use
  Company Number: US-TEVA-786795USA

PATIENT
  Sex: Male
  Weight: 90.8 kg

DRUGS (2)
  1. PROAIR HFA [Suspect]
     Active Substance: ALBUTEROL SULFATE
     Indication: ASTHMA
     Route: 065
     Dates: start: 2008
  2. MARIJUANA [Concomitant]
     Active Substance: CANNABIS SATIVA SUBSP. INDICA TOP
     Indication: DEPRESSION

REACTIONS (4)
  - Product physical issue [Unknown]
  - Drug dependence [Not Recovered/Not Resolved]
  - Inappropriate schedule of drug administration [Unknown]
  - Intentional product misuse [Unknown]
